FAERS Safety Report 25253878 (Version 3)
Quarter: 2025Q3

REPORT INFORMATION
  Report Type: Spontaneous
  Country: US (occurrence: US)
  Receive Date: 20250430
  Receipt Date: 20250810
  Transmission Date: 20251021
  Serious: No
  Sender: DAIICHI
  Company Number: US-DAIICHI SANKYO, INC.-DS-2025-138446-USAA

PATIENT
  Sex: Male

DRUGS (3)
  1. VANFLYTA [Suspect]
     Active Substance: QUIZARTINIB DIHYDROCHLORIDE
     Indication: Acute myeloid leukaemia
     Dosage: 17.7 MG (2 TABLETS ONCE  DAILY FOR 14  DAYS ON DAYS  6-19 OF A 28  DAY CYCLE), BID
     Route: 048
     Dates: start: 20250306
  2. VANFLYTA [Suspect]
     Active Substance: QUIZARTINIB DIHYDROCHLORIDE
     Indication: Acute promyelocytic leukaemia
  3. VANFLYTA [Suspect]
     Active Substance: QUIZARTINIB DIHYDROCHLORIDE
     Indication: Thrombocytopenia

REACTIONS (2)
  - Ill-defined disorder [Not Recovered/Not Resolved]
  - Off label use [Not Recovered/Not Resolved]
